FAERS Safety Report 5819426-4 (Version None)
Quarter: 2008Q3

REPORT INFORMATION
  Report Type: 
  Country: None (occurrence: None)
  Receive Date: 20080718
  Receipt Date: 20080708
  Transmission Date: 20090109
  Serious: Yes (Hospitalization)
  Sender: FDA-Public Use
  Company Number: 002147

PATIENT
  Age: 42 Year
  Sex: Male

DRUGS (4)
  1. BUSULFEX [Suspect]
     Indication: STEM CELL TRANSPLANT
     Dosage: 150 ML, INTRAVENOUS
     Route: 042
     Dates: start: 20070112, end: 20070115
  2. FLUDARABINE PHOSPHATE [Concomitant]
  3. VALPROATE SODIUM [Concomitant]
  4. TACROLIMUS [Concomitant]

REACTIONS (5)
  - ACUTE MYELOID LEUKAEMIA RECURRENT [None]
  - CORD BLOOD TRANSPLANT THERAPY [None]
  - NAUSEA [None]
  - SEPSIS [None]
  - STOMATITIS [None]
